FAERS Safety Report 21492031 (Version 1)
Quarter: 2022Q4

REPORT INFORMATION
  Report Type: Spontaneous
  Country: EE (occurrence: EE)
  Receive Date: 20221021
  Receipt Date: 20221021
  Transmission Date: 20230113
  Serious: Yes (Other)
  Sender: FDA-Public Use
  Company Number: EE-GLAXOSMITHKLINE-EE2022EME150362

PATIENT

DRUGS (6)
  1. NUCALA [Suspect]
     Active Substance: MEPOLIZUMAB
     Indication: Asthma
     Dosage: 100 MG, Z (1 IN MONTH)
     Route: 058
     Dates: start: 20220726, end: 20220916
  2. URSODIOL [Concomitant]
     Active Substance: URSODIOL
     Indication: Product used for unknown indication
     Dosage: 250 MG, QID, 4 TIMES A DAY
     Route: 048
  3. CEZERA [Concomitant]
     Indication: Product used for unknown indication
     Dosage: 5 MG, QD
     Route: 048
  4. FOSTER [Concomitant]
     Active Substance: BECLOMETHASONE\FORMOTEROL
     Indication: Asthma
     Dosage: 100 MCG/6MCG, BID, 200 MCG/6MCG DAILY
     Route: 055
  5. MONTELUKAST [Concomitant]
     Active Substance: MONTELUKAST SODIUM
     Indication: Product used for unknown indication
     Dosage: 10 MG, QD
     Route: 048
  6. FENOTEROL HYDROBROMIDE\IPRATROPIUM BROMIDE [Concomitant]
     Active Substance: FENOTEROL HYDROBROMIDE\IPRATROPIUM BROMIDE
     Indication: Asthma
     Dosage: UNK, BID, 50MCG+20MCG, BID, 100MCG+40MCG DAILY
     Route: 055

REACTIONS (19)
  - Depressed level of consciousness [Recovered/Resolved]
  - Vomiting [Unknown]
  - Dizziness [Unknown]
  - Nausea [Unknown]
  - Vision blurred [Recovered/Resolved]
  - Feeling hot [Unknown]
  - Oropharyngeal discomfort [Unknown]
  - Headache [Not Recovered/Not Resolved]
  - Asthenia [Unknown]
  - Fatigue [Unknown]
  - Injection site pruritus [Recovered/Resolved]
  - Oedema peripheral [Recovered/Resolved]
  - Hypoaesthesia [Recovered/Resolved]
  - Dyspnoea [Unknown]
  - Malaise [Unknown]
  - Pain in extremity [Unknown]
  - Paraesthesia [Unknown]
  - Muscle spasms [Unknown]
  - Condition aggravated [Unknown]

NARRATIVE: CASE EVENT DATE: 20220823
